FAERS Safety Report 8884716 (Version 2)
Quarter: 2013Q2

REPORT INFORMATION
  Report Type: Spontaneous
  Country: US (occurrence: US)
  Receive Date: 20121102
  Receipt Date: 20130620
  Transmission Date: 20140414
  Serious: Yes (Death, Other)
  Sender: FDA-Public Use
  Company Number: US-ASTRAZENECA-2012SE79687

PATIENT
  Age: 84 Year
  Sex: Female
  Weight: 79.4 kg

DRUGS (4)
  1. CRESTOR [Suspect]
     Indication: BLOOD CHOLESTEROL ABNORMAL
     Route: 048
  2. ZETIA [Concomitant]
  3. DEXILANT [Concomitant]
  4. LYRICA [Concomitant]
     Indication: RESTLESS LEGS SYNDROME

REACTIONS (5)
  - Death [Fatal]
  - Loss of consciousness [Unknown]
  - Parkinson^s disease [Unknown]
  - Restless legs syndrome [Unknown]
  - Diabetes mellitus [Unknown]
